FAERS Safety Report 16322630 (Version 1)
Quarter: 2019Q2

REPORT INFORMATION
  Report Type: Report from Study
  Country: US (occurrence: US)
  Receive Date: 20190516
  Receipt Date: 20190516
  Transmission Date: 20190711
  Serious: Yes (Other)
  Sender: FDA-Public Use
  Company Number: US-GILEAD-2019-0407609

PATIENT
  Age: 16 Year
  Sex: Female

DRUGS (2)
  1. VANCOMYCIN [Concomitant]
     Active Substance: VANCOMYCIN
     Dosage: ON AND OFF CYCLE OF CAYSTON
  2. AZTREONAM LYSINE [Suspect]
     Active Substance: AZTREONAM LYSINE
     Indication: CYSTIC FIBROSIS
     Dosage: 1 DOSAGE FORM

REACTIONS (8)
  - Dizziness [Unknown]
  - Postural orthostatic tachycardia syndrome [Unknown]
  - Incorrect route of product administration [Unknown]
  - Abdominal pain upper [Unknown]
  - Sinusitis [Unknown]
  - Migraine [Unknown]
  - Lung infection [Unknown]
  - Anxiety [Unknown]

NARRATIVE: CASE EVENT DATE: 2018
